FAERS Safety Report 6643014-3 (Version None)
Quarter: 2010Q1

REPORT INFORMATION
  Report Type: 
  Country: None (occurrence: None)
  Receive Date: 20100319
  Receipt Date: 20100309
  Transmission Date: 20100710
  Serious: Yes (Other)
  Sender: FDA-Public Use
  Company Number: B0635877A

PATIENT
  Age: 1 Year
  Sex: Male

DRUGS (4)
  1. CLAVAMOX [Suspect]
     Indication: DRUG USE FOR UNKNOWN INDICATION
     Route: 048
     Dates: start: 20100110, end: 20100115
  2. LEBENIN [Concomitant]
     Indication: DRUG USE FOR UNKNOWN INDICATION
  3. ACDEAM [Concomitant]
     Indication: DRUG USE FOR UNKNOWN INDICATION
  4. MEDICON [Concomitant]
     Indication: DRUG USE FOR UNKNOWN INDICATION

REACTIONS (3)
  - DIARRHOEA [None]
  - HAEMATOCHEZIA [None]
  - PSEUDOMEMBRANOUS COLITIS [None]
